FAERS Safety Report 23798830 (Version 1)
Quarter: 2024Q2

REPORT INFORMATION
  Report Type: Spontaneous
  Country: US (occurrence: None)
  Receive Date: 20240426
  Receipt Date: 20240426
  Transmission Date: 20240716
  Serious: Yes (Other)
  Sender: FDA-Public Use
  Company Number: None

PATIENT
  Age: 89 Year
  Sex: Male
  Weight: 69.4 kg

DRUGS (2)
  1. FERAHEME [Suspect]
     Active Substance: FERUMOXYTOL NON-STOICHIOMETRIC MAGNETITE
     Indication: Iron deficiency anaemia
     Dates: start: 20240405, end: 20240405
  2. feraheme 510 mg [Concomitant]
     Dates: start: 20240405, end: 20240405

REACTIONS (3)
  - Feeling hot [None]
  - Flushing [None]
  - Drug intolerance [None]

NARRATIVE: CASE EVENT DATE: 20240405
